FAERS Safety Report 14139694 (Version 2)
Quarter: 2018Q1

REPORT INFORMATION
  Report Type: Report from Study
  Country: IT (occurrence: IT)
  Receive Date: 20171029
  Receipt Date: 20180301
  Transmission Date: 20180508
  Serious: Yes (Hospitalization, Other)
  Sender: FDA-Public Use
  Company Number: IT-MYLANLABS-2017M1067004

PATIENT
  Age: 43 Year
  Sex: Female

DRUGS (3)
  1. LOBIVON [Suspect]
     Active Substance: NEBIVOLOL HYDROCHLORIDE
     Indication: PRODUCT USED FOR UNKNOWN INDICATION
     Dosage: 140 MG, TOTAL
     Route: 048
     Dates: start: 20170716, end: 20170716
  2. RAMIPRIL. [Suspect]
     Active Substance: RAMIPRIL
     Indication: PRODUCT USED FOR UNKNOWN INDICATION
     Dosage: 70 MG, TOTAL
     Route: 048
     Dates: start: 20170716, end: 20170716
  3. PROZIN (CHLORPROMAZINE HYDROCHLORIDE) [Suspect]
     Active Substance: CHLORPROMAZINE HYDROCHLORIDE
     Indication: PRODUCT USED FOR UNKNOWN INDICATION
     Dosage: 1 DF, TOTAL
     Route: 048
     Dates: start: 20170716, end: 20170716

REACTIONS (8)
  - Bradycardia [Unknown]
  - Drug abuse [Unknown]
  - Intentional self-injury [Unknown]
  - Overdose [Unknown]
  - Coma scale abnormal [Unknown]
  - Hypotension [Unknown]
  - Miosis [Unknown]
  - Sopor [Unknown]

NARRATIVE: CASE EVENT DATE: 20170716
